FAERS Safety Report 23538358 (Version 1)
Quarter: 2024Q1

REPORT INFORMATION
  Report Type: Spontaneous
  Country: US (occurrence: US)
  Receive Date: 20240219
  Receipt Date: 20240219
  Transmission Date: 20240410
  Serious: Yes (Hospitalization, Disabling, Other)
  Sender: FDA-Public Use
  Company Number: US-CHEPLA-2024002077

PATIENT
  Age: 43 Year
  Sex: Male

DRUGS (2)
  1. OLANZAPINE [Suspect]
     Active Substance: OLANZAPINE
     Dosage: STRENGTH 2.5MG, MATERIAL NUMBER TA4756
  2. OLANZAPINE [Suspect]
     Active Substance: OLANZAPINE
     Dosage: STRENGTH 5MG, MATERIAL NUMBER TA4757

REACTIONS (3)
  - Toe amputation [Recovering/Resolving]
  - Road traffic accident [Unknown]
  - Diabetes mellitus [Unknown]

NARRATIVE: CASE EVENT DATE: 20230419
